FAERS Safety Report 21607664 (Version 1)
Quarter: 2022Q4

REPORT INFORMATION
  Report Type: Report from Study
  Country: US (occurrence: US)
  Receive Date: 20221117
  Receipt Date: 20221117
  Transmission Date: 20230113
  Serious: No
  Sender: FDA-Public Use
  Company Number: US-ABBVIE-22K-163-4517902-00

PATIENT
  Age: 75 Year
  Sex: Female
  Weight: 77.11 kg

DRUGS (12)
  1. SKYRIZI [Suspect]
     Active Substance: RISANKIZUMAB-RZAA
     Indication: Psoriasis
     Dosage: FORM STRENGTH: 150 MILLIGRAM
     Route: 058
     Dates: start: 20220128
  2. SKYRIZI [Suspect]
     Active Substance: RISANKIZUMAB-RZAA
     Indication: Psoriatic arthropathy
  3. IRON [Concomitant]
     Active Substance: IRON
     Indication: Product used for unknown indication
  4. MINERALS\VITAMINS [Concomitant]
     Active Substance: MINERALS\VITAMINS
     Indication: Product used for unknown indication
  5. LEXAPRO [Concomitant]
     Active Substance: ESCITALOPRAM OXALATE
     Indication: Depression
  6. VITAMIN D [Concomitant]
     Active Substance: VITAMIN D NOS
     Indication: Product used for unknown indication
  7. LEVOTHYROXINE [Concomitant]
     Active Substance: LEVOTHYROXINE
     Indication: Thyroid disorder
  8. Pfizer/BioNTech Covid 19 vaccine [Concomitant]
     Indication: COVID-19 immunisation
     Dosage: 1ST DOSE
     Route: 030
  9. Pfizer/BioNTech Covid 19 vaccine [Concomitant]
     Indication: COVID-19 immunisation
     Dosage: 2ND DOSE
     Route: 030
  10. Pfizer/BioNTech Covid 19 vaccine [Concomitant]
     Indication: COVID-19 immunisation
     Dosage: 1ST BOOSTER
     Route: 030
  11. Pfizer/BioNTech Covid 19 vaccine [Concomitant]
     Indication: COVID-19 immunisation
     Dosage: 2ND BOOSTER
     Route: 030
  12. TRIAMTERENE [Concomitant]
     Active Substance: TRIAMTERENE
     Indication: Hypertension

REACTIONS (4)
  - Trigeminal neuralgia [Not Recovered/Not Resolved]
  - Pruritus [Recovering/Resolving]
  - Therapeutic response shortened [Unknown]
  - Arthralgia [Recovering/Resolving]

NARRATIVE: CASE EVENT DATE: 20220920
